FAERS Safety Report 25878868 (Version 1)
Quarter: 2025Q4

REPORT INFORMATION
  Report Type: Spontaneous
  Country: US (occurrence: US)
  Receive Date: 20251003
  Receipt Date: 20251003
  Transmission Date: 20260117
  Serious: Yes (Hospitalization)
  Sender: PARI RESPIRATORY EQUIPMENT
  Company Number: US-PARI RESPIRATORY EQUIPMENT, INC.-2025PAR00074

PATIENT
  Age: 8 Year
  Sex: Female
  Weight: 30.295 kg

DRUGS (16)
  1. KITABIS PAK [Suspect]
     Active Substance: TOBRAMYCIN
     Indication: Lung disorder
     Dosage: 300 MG, 2X/DAY VIA NEBULIZER, FOR 28 DAYS ON AND 28 DAYS OFF
  2. EPIDIOLEX [Concomitant]
     Active Substance: CANNABIDIOL
  3. VITAMINS [Concomitant]
     Active Substance: VITAMINS
  4. ZONISAMIDE [Concomitant]
     Active Substance: ZONISAMIDE
  5. CLOBAZAM [Concomitant]
     Active Substance: CLOBAZAM
  6. DIAZEPAM [Concomitant]
     Active Substance: DIAZEPAM
  7. FLOVENT HFA [Concomitant]
     Active Substance: FLUTICASONE PROPIONATE
  8. LANTUS [Concomitant]
     Active Substance: INSULIN GLARGINE
  9. HUMALOG [Concomitant]
     Active Substance: INSULIN LISPRO
  10. SULFAMETHOXAZOLE AND TRIMETHOPRIM [Concomitant]
     Active Substance: SULFAMETHOXAZOLE\TRIMETHOPRIM
  11. SODIUM CHLORIDE [Concomitant]
     Active Substance: SODIUM CHLORIDE
     Dosage: NEBULIZER
  12. LEVALBUTEROL TARTRATE [Concomitant]
     Active Substance: LEVALBUTEROL TARTRATE
  13. ALBUTEROL SULFATE [Concomitant]
     Active Substance: ALBUTEROL SULFATE
  14. PHENOBARBITAL [Concomitant]
     Active Substance: PHENOBARBITAL
  15. FAMOTIDINE [Concomitant]
     Active Substance: FAMOTIDINE
  16. KEPPRA [Concomitant]
     Active Substance: LEVETIRACETAM

REACTIONS (2)
  - Rhinovirus infection [Unknown]
  - Off label use [Unknown]

NARRATIVE: CASE EVENT DATE: 20250819
